FAERS Safety Report 4700242-1 (Version None)
Quarter: 2005Q2

REPORT INFORMATION
  Report Type: 
  Country: None (occurrence: None)
  Receive Date: 20050627
  Receipt Date: 20050613
  Transmission Date: 20051028
  Serious: Yes (Other)
  Sender: FDA-Public Use
  Company Number: FR-JNJFOC-20050606536

PATIENT
  Age: 34 Year
  Sex: Male

DRUGS (3)
  1. TOPALGIC [Suspect]
     Route: 049
  2. TOPALGIC [Suspect]
     Route: 049
  3. CLONAZEPAM [Suspect]
     Indication: DRUG USE FOR UNKNOWN INDICATION
     Route: 049

REACTIONS (2)
  - CEREBRAL VENTRICLE DILATATION [None]
  - VISUAL FIELD DEFECT [None]
